FAERS Safety Report 7357883-5 (Version None)
Quarter: 2011Q1

REPORT INFORMATION
  Report Type: 
  Country: None (occurrence: None)
  Receive Date: 20110317
  Receipt Date: 20110307
  Transmission Date: 20110831
  Serious: Yes (Other)
  Sender: FDA-Public Use
  Company Number: US-SANOFI-AVENTIS-2010SA020865

PATIENT
  Age: 71 Year
  Sex: Female
  Weight: 49 kg

DRUGS (15)
  1. PREVACID [Concomitant]
     Indication: GASTRIC DISORDER
  2. CICLESONIDE [Concomitant]
     Indication: ASTHMA
     Dates: start: 20090101
  3. IBANDRONIC ACID [Concomitant]
     Dosage: QUARTERLY
     Route: 051
  4. MAXAIR [Concomitant]
  5. MULTAQ [Suspect]
     Indication: ATRIAL FIBRILLATION
     Route: 048
     Dates: start: 20100407
  6. VITAMIN B-12 [Concomitant]
     Dates: start: 20090101
  7. TRAVATAN [Concomitant]
     Indication: GLAUCOMA
  8. REMERON [Concomitant]
     Indication: SLEEP DISORDER
     Route: 065
  9. METRONIDAZOLE [Concomitant]
     Indication: ROSACEA
  10. MULTIVITAMIN [Concomitant]
  11. CALCIUM [Concomitant]
  12. ALL OTHER THERAPEUTIC PRODUCTS [Concomitant]
     Indication: EYE DISORDER
     Dates: start: 20080101
  13. RETIN-A [Concomitant]
     Indication: ROSACEA
  14. ASPIRIN [Concomitant]
     Dates: start: 20090101
  15. ALL OTHER THERAPEUTIC PRODUCTS [Concomitant]

REACTIONS (3)
  - SYNCOPE [None]
  - ATRIAL FIBRILLATION [None]
  - HEART RATE INCREASED [None]
